FAERS Safety Report 17785699 (Version 1)
Quarter: 2020Q2

REPORT INFORMATION
  Report Type: Spontaneous
  Country: US (occurrence: US)
  Receive Date: 20200514
  Receipt Date: 20200514
  Transmission Date: 20200714
  Serious: Yes (Other)
  Sender: FDA-Public Use
  Company Number: US-VERTEX PHARMACEUTICALS-2020-010545

PATIENT
  Sex: Female
  Weight: 38 kg

DRUGS (7)
  1. PANCREAZE [Concomitant]
     Active Substance: PANCRELIPASE AMYLASE\PANCRELIPASE LIPASE\PANCRELIPASE PROTEASE
  2. FLONASE ALLERGY RELIEF [Concomitant]
     Active Substance: FLUTICASONE PROPIONATE
  3. TOBI [Concomitant]
     Active Substance: TOBRAMYCIN
     Dosage: 300MG/5 ML AMPUL
     Route: 045
  4. ZYRTEC [Concomitant]
     Active Substance: CETIRIZINE HYDROCHLORIDE
     Dosage: 10 MG
  5. URSODIOL. [Concomitant]
     Active Substance: URSODIOL
     Dosage: 250 MG
  6. HYPERSAL [Concomitant]
     Active Substance: SODIUM CHLORIDE
     Dosage: 3.5 % VIAL
     Route: 045
  7. TRIKAFTA [Suspect]
     Active Substance: ELEXACAFTOR\IVACAFTOR\TEZACAFTOR
     Indication: CYSTIC FIBROSIS
     Dosage: 2 TAB 100 MG ELEXACAFTOR/ 50 MG TEZACAFTOR/ 75 MG IVACAFTOR, AM AND 1 TAB 150MG IVACAFTOR, PM (BID)
     Route: 048

REACTIONS (1)
  - Complication associated with device [Unknown]
